FAERS Safety Report 11758194 (Version 1)
Quarter: 2015Q4

REPORT INFORMATION
  Report Type: Spontaneous
  Country: US (occurrence: US)
  Receive Date: 20151120
  Receipt Date: 20151120
  Transmission Date: 20160304
  Serious: No
  Sender: FDA-Public Use
  Company Number: US-PERRIGO-15US008532

PATIENT
  Age: 62 Year
  Sex: Female
  Weight: 58.5 kg

DRUGS (5)
  1. FAMOTIDINE. [Suspect]
     Active Substance: FAMOTIDINE
     Dosage: 20 MG, SINGLE
     Route: 048
     Dates: start: 20150815, end: 20150815
  2. FAMOTIDINE. [Suspect]
     Active Substance: FAMOTIDINE
     Dosage: 20 MG, BID
     Route: 048
     Dates: start: 20150816, end: 20150816
  3. FAMOTIDINE. [Suspect]
     Active Substance: FAMOTIDINE
     Dosage: 20 MG, SINGLE
     Route: 048
     Dates: start: 20150815, end: 20150815
  4. FAMOTIDINE. [Suspect]
     Active Substance: FAMOTIDINE
     Indication: DYSPEPSIA
     Dosage: 20 MG, BID
     Route: 048
     Dates: start: 20150804, end: 20150814
  5. VITAMINS NOS [Concomitant]
     Active Substance: VITAMINS
     Indication: ROUTINE HEALTH MAINTENANCE
     Dosage: UNK
     Route: 065

REACTIONS (5)
  - Pollakiuria [Recovered/Resolved]
  - Abdominal discomfort [Recovered/Resolved]
  - Throat irritation [Recovered/Resolved]
  - Drug ineffective [Unknown]
  - Throat tightness [Recovered/Resolved]

NARRATIVE: CASE EVENT DATE: 20150804
